FAERS Safety Report 11512620 (Version 16)
Quarter: 2020Q2

REPORT INFORMATION
  Report Type: Report from Study
  Country: DE (occurrence: DE)
  Receive Date: 20150916
  Receipt Date: 20200504
  Transmission Date: 20200713
  Serious: Yes (Hospitalization, Other)
  Sender: FDA-Public Use
  Company Number: DE-ROCHE-1587446

PATIENT
  Age: 77 Year
  Sex: Female
  Weight: 80 kg

DRUGS (18)
  1. L-THYROXIN [LEVOTHYROXINE SODIUM] [Concomitant]
     Active Substance: LEVOTHYROXINE SODIUM
     Dosage: TREATMENT AFTER THYROID SURGERY
     Route: 065
  2. VALSACOR [Concomitant]
     Active Substance: VALSARTAN
     Route: 065
  3. VIGANTOLETTEN [Concomitant]
     Active Substance: CHOLECALCIFEROL
  4. TORASEMID [Concomitant]
     Active Substance: TORSEMIDE
     Route: 065
  5. NOVAMINSULFON [Concomitant]
     Active Substance: METAMIZOLE
     Dosage: AS REQUIRED
     Route: 065
  6. HYDROCHLOROTHIAZIDE. [Concomitant]
     Active Substance: HYDROCHLOROTHIAZIDE
  7. L-THYROXIN [LEVOTHYROXINE SODIUM] [Concomitant]
     Active Substance: LEVOTHYROXINE SODIUM
     Route: 065
  8. ROACTEMRA [Suspect]
     Active Substance: TOCILIZUMAB
     Indication: RHEUMATOID ARTHRITIS
     Dosage: ON THURSDAYS
     Route: 058
     Dates: start: 20150513, end: 20180927
  9. TORASEMID [Concomitant]
     Active Substance: TORSEMIDE
     Indication: HYPERTENSION
     Route: 065
  10. METHOTREXATE. [Concomitant]
     Active Substance: METHOTREXATE
     Indication: RHEUMATOID ARTHRITIS
     Dosage: ON TUESDAYS
     Route: 058
     Dates: start: 2002
  11. PANTOPRAZOL [PANTOPRAZOLE] [Concomitant]
     Active Substance: PANTOPRAZOLE
     Route: 065
  12. MARCUMAR [Suspect]
     Active Substance: PHENPROCOUMON
     Indication: PRODUCT USED FOR UNKNOWN INDICATION
     Route: 065
  13. BISOPROLOL [Concomitant]
     Active Substance: BISOPROLOL
     Route: 065
  14. VOLTAREN [DICLOFENAC] [Concomitant]
     Active Substance: DICLOFENAC SODIUM
     Route: 065
  15. KALINOR [CITRIC ACID;POTASSIUM BICARBONATE;POTASSIUM CITRATE] [Concomitant]
     Active Substance: CITRIC ACID MONOHYDRATE\POTASSIUM BICARBONATE\POTASSIUM CITRATE
  16. VIGANTOLETTEN [Concomitant]
     Active Substance: CHOLECALCIFEROL
  17. METHOTREXATE. [Concomitant]
     Active Substance: METHOTREXATE
     Route: 058
     Dates: start: 2002
  18. CORTISONE [Concomitant]
     Active Substance: CORTISONE
     Dosage: AS REQUIRED
     Route: 065

REACTIONS (30)
  - Dizziness [Recovered/Resolved]
  - Injection site swelling [Recovered/Resolved]
  - General physical health deterioration [Not Recovered/Not Resolved]
  - Musculoskeletal pain [Not Recovered/Not Resolved]
  - Nasopharyngitis [Not Recovered/Not Resolved]
  - Blood uric acid increased [Not Recovered/Not Resolved]
  - Joint swelling [Recovered/Resolved]
  - Cardiac ablation [Recovered/Resolved]
  - Rheumatoid arthritis [Not Recovered/Not Resolved]
  - Glossodynia [Recovered/Resolved]
  - Arthralgia [Not Recovered/Not Resolved]
  - Liver function test increased [Not Recovered/Not Resolved]
  - Blood pressure fluctuation [Not Recovered/Not Resolved]
  - Paraesthesia [Not Recovered/Not Resolved]
  - Peripheral swelling [Recovered/Resolved]
  - Mass [Not Recovered/Not Resolved]
  - Dyspnoea [Not Recovered/Not Resolved]
  - Musculoskeletal stiffness [Not Recovered/Not Resolved]
  - Paraesthesia [Not Recovered/Not Resolved]
  - Intervertebral disc protrusion [Not Recovered/Not Resolved]
  - Weight increased [Recovering/Resolving]
  - Pneumonia [Recovering/Resolving]
  - Nausea [Recovered/Resolved]
  - Arthralgia [Recovered/Resolved]
  - Urinary tract infection [Recovered/Resolved]
  - Cardiac valve disease [Unknown]
  - Back pain [Not Recovered/Not Resolved]
  - Rheumatoid arthritis [Recovering/Resolving]
  - Contusion [Not Recovered/Not Resolved]
  - Pain in extremity [Recovered/Resolved]

NARRATIVE: CASE EVENT DATE: 20150513
